FAERS Safety Report 18612276 (Version 1)
Quarter: 2020Q4

REPORT INFORMATION
  Report Type: Spontaneous
  Country: FR (occurrence: FR)
  Receive Date: 20201214
  Receipt Date: 20201214
  Transmission Date: 20210114
  Serious: Yes (Hospitalization)
  Sender: FDA-Public Use
  Company Number: FR-MYLANLABS-2020M1101135

PATIENT
  Age: 98 Year
  Sex: Female
  Weight: 62.8 kg

DRUGS (3)
  1. FUROSEMIDE ARROW [Suspect]
     Active Substance: FUROSEMIDE
     Indication: CARDIAC FAILURE
     Dosage: 80 MILLIGRAM, QD
     Route: 048
     Dates: start: 20200720
  2. PANTOPRAZOLE MYLAN 40 MG, COMPRIM? GASTRO-R?SISTANT [Suspect]
     Active Substance: PANTOPRAZOLE SODIUM
     Indication: GASTRODUODENAL ULCER
     Dosage: 80 MILLIGRAM, QD
     Route: 048
     Dates: start: 20200719
  3. SPIRONOLACTONE ARROW [Suspect]
     Active Substance: SPIRONOLACTONE
     Indication: CARDIAC FAILURE
     Dosage: 25 MILLIGRAM, QD
     Route: 048
     Dates: start: 20200822, end: 20201113

REACTIONS (2)
  - Erythema [Not Recovered/Not Resolved]
  - Pruritus [Not Recovered/Not Resolved]

NARRATIVE: CASE EVENT DATE: 20200905
